FAERS Safety Report 4465099-5 (Version None)
Quarter: 2004Q4

REPORT INFORMATION
  Report Type: 
  Country: None (occurrence: None)
  Receive Date: 20041004
  Receipt Date: 20040922
  Transmission Date: 20050328
  Serious: Yes (Hospitalization)
  Sender: FDA-Public Use
  Company Number: 200413531FR

PATIENT
  Age: 70 Year
  Sex: Female

DRUGS (5)
  1. LASILIX 40 MG [Suspect]
     Route: 048
     Dates: end: 20010918
  2. TEGRETOL [Suspect]
     Route: 048
     Dates: end: 20010918
  3. TRIATEC FAIBLE 1.25 MG [Concomitant]
     Indication: ESSENTIAL HYPERTENSION
     Route: 048
  4. ISOPTINE LP 240 MG [Concomitant]
     Indication: ESSENTIAL HYPERTENSION
     Route: 048
  5. MOPRAL [Concomitant]
     Route: 048

REACTIONS (6)
  - ACUTE PULMONARY OEDEMA [None]
  - AGGRESSION [None]
  - AGITATION [None]
  - BLOOD SODIUM DECREASED [None]
  - CONFUSIONAL STATE [None]
  - DISORIENTATION [None]
